FAERS Safety Report 6388432-6 (Version None)
Quarter: 2009Q3

REPORT INFORMATION
  Report Type: 
  Country: None (occurrence: None)
  Receive Date: 20090930
  Receipt Date: 20090917
  Transmission Date: 20100115
  Serious: Yes (Hospitalization, Disabling)
  Sender: FDA-Public Use
  Company Number: 230121K09IRL

PATIENT
  Age: 42 Year
  Sex: Female

DRUGS (14)
  1. REBIF [Suspect]
     Indication: MULTIPLE SCLEROSIS
     Dosage: 44 MCG
     Dates: start: 20000417, end: 20090802
  2. ZANAFLEX [Concomitant]
  3. LACTULOSE [Concomitant]
  4. CALCICHEW D3 (LEKOVIT CA) [Concomitant]
  5. TOLTERODINE TARTRATE [Concomitant]
  6. BACLOFEN [Concomitant]
  7. FLUOXETINE (FLUOXETINE /00724401/) [Concomitant]
  8. AMITRIPTYLINE HCL [Concomitant]
  9. GALFER (FERROUS FUMARATE) [Concomitant]
  10. ATORVASTATIN CALCIUM [Concomitant]
  11. CARBAMAZEPINE [Concomitant]
  12. LANSOPRAZOLE [Concomitant]
  13. PREGABALIN [Concomitant]
  14. FYBOGEL (PLANTAGO OVATA) [Concomitant]

REACTIONS (2)
  - CONDITION AGGRAVATED [None]
  - MULTIPLE SCLEROSIS [None]
